FAERS Safety Report 11783258 (Version 1)
Quarter: 2015Q4

REPORT INFORMATION
  Report Type: Report from Study
  Country: BR (occurrence: BR)
  Receive Date: 20151127
  Receipt Date: 20151127
  Transmission Date: 20160305
  Serious: Yes (Hospitalization, Other)
  Sender: FDA-Public Use
  Company Number: PHHY2015BR152690

PATIENT
  Sex: Male
  Weight: 78 kg

DRUGS (1)
  1. DIOVAN AMLO FIX [Suspect]
     Active Substance: AMLODIPINE\VALSARTAN
     Indication: HYPERTENSION
     Dosage: 1 DF, QD (MORE THAN 10 YEARS AGO)
     Route: 048

REACTIONS (4)
  - Metastases to lung [Recovering/Resolving]
  - Respiratory failure [Recovering/Resolving]
  - Gastrointestinal carcinoma [Recovering/Resolving]
  - Renal failure [Recovering/Resolving]
